FAERS Safety Report 5447867-6 (Version None)
Quarter: 2007Q3

REPORT INFORMATION
  Report Type: 
  Country: None (occurrence: None)
  Receive Date: 20070910
  Receipt Date: 20070829
  Transmission Date: 20080115
  Serious: Yes (Hospitalization)
  Sender: FDA-Public Use
  Company Number: DE-PFIZER INC-2007050642

PATIENT
  Sex: Male

DRUGS (2)
  1. SU-011,248 [Suspect]
     Indication: METASTATIC RENAL CELL CARCINOMA
     Route: 048
     Dates: start: 20061213, end: 20070111
  2. AMOXIPEN [Concomitant]
     Dosage: TEXT:3 G
     Route: 048
     Dates: start: 20070110, end: 20070120

REACTIONS (1)
  - BLOOD CREATINE PHOSPHOKINASE INCREASED [None]
